FAERS Safety Report 24350913 (Version 1)
Quarter: 2024Q3

REPORT INFORMATION
  Report Type: Spontaneous
  Country: PL (occurrence: PL)
  Receive Date: 20240923
  Receipt Date: 20240923
  Transmission Date: 20241016
  Serious: No
  Sender: ROCHE
  Company Number: None

PATIENT
  Age: 40 Year
  Sex: Female
  Weight: 78.0 kg

DRUGS (1)
  1. HERCEPTIN [Suspect]
     Active Substance: TRASTUZUMAB
     Indication: Product used for unknown indication
     Dosage: START DATE: 12:50; END DATE: 12:53;
     Route: 065

REACTIONS (2)
  - Administration site erythema [Recovered/Resolved]
  - Administration site oedema [Recovered/Resolved]
